FAERS Safety Report 5971822-0 (Version None)
Quarter: 2008Q4

REPORT INFORMATION
  Report Type: 
  Country: None (occurrence: None)
  Receive Date: 20081125
  Receipt Date: 20081111
  Transmission Date: 20090506
  Serious: Yes (Hospitalization)
  Sender: FDA-Public Use
  Company Number: 2008US002409

PATIENT
  Age: 58 Year
  Sex: Female
  Weight: 104.3 kg

DRUGS (12)
  1. AMEVIVE [Suspect]
     Indication: PSORIASIS
     Dosage: 15 MG,WEEKLY, INTRAMUSCULAR
     Route: 030
     Dates: start: 20041223, end: 20050524
  2. BYETTA [Concomitant]
  3. ASPIRIN [Concomitant]
  4. ATENOLOL [Concomitant]
  5. SYNTHROID [Concomitant]
  6. DIOVAN [Concomitant]
  7. LIPITOR [Concomitant]
  8. ALLOPURINOL [Concomitant]
  9. XALATAN [Concomitant]
  10. PROTONIX [Concomitant]
  11. METFORMIN HCL [Concomitant]
  12. GLIMEPRID GLIMEPIRIDE) [Concomitant]

REACTIONS (6)
  - ASTHMA [None]
  - BUNDLE BRANCH BLOCK LEFT [None]
  - CHEST DISCOMFORT [None]
  - CHRONIC OBSTRUCTIVE PULMONARY DISEASE [None]
  - CONDITION AGGRAVATED [None]
  - UPPER RESPIRATORY TRACT INFECTION [None]
